FAERS Safety Report 7793407-6 (Version None)
Quarter: 2011Q4

REPORT INFORMATION
  Report Type: 
  Country: None (occurrence: None)
  Receive Date: 20111003
  Receipt Date: 20110922
  Transmission Date: 20120403
  Serious: Yes (Other)
  Sender: FDA-Public Use
  Company Number: US-ASTRAZENECA-2011SE57270

PATIENT
  Age: 77 Year
  Sex: Male

DRUGS (2)
  1. DILANTIN [Concomitant]
  2. CRESTOR [Suspect]
     Route: 048

REACTIONS (2)
  - CONVULSION [None]
  - MEMORY IMPAIRMENT [None]
